FAERS Safety Report 7481285-4 (Version None)
Quarter: 2011Q2

REPORT INFORMATION
  Report Type: 
  Country: None (occurrence: None)
  Receive Date: 20110506
  Receipt Date: 20110502
  Transmission Date: 20111010
  Serious: Yes (Death, Life-Threatening, Other)
  Sender: FDA-Public Use
  Company Number: 201110367

PATIENT
  Age: 73 Year
  Sex: Female

DRUGS (3)
  1. BUPIVICAINE [Concomitant]
  2. SUFENTA PRESERVATIVE FREE [Concomitant]
  3. LIORESAL [Suspect]
     Indication: MUSCLE SPASTICITY
     Dosage: 333.50 MCG, DAILY, INTRATHECAL
     Route: 037

REACTIONS (1)
  - GASTROINTESTINAL HAEMORRHAGE [None]
